FAERS Safety Report 23803910 (Version 1)
Quarter: 2024Q2

REPORT INFORMATION
  Report Type: Spontaneous
  Country: US (occurrence: None)
  Receive Date: 20240430
  Receipt Date: 20240430
  Transmission Date: 20240715
  Serious: No
  Sender: FDA-Public Use
  Company Number: None

PATIENT
  Age: 56 Year
  Sex: Male
  Weight: 92.25 kg

DRUGS (6)
  1. LASIX [Suspect]
     Active Substance: FUROSEMIDE
  2. TADALAFIL [Suspect]
     Active Substance: TADALAFIL
  3. SYMBICORT [Suspect]
     Active Substance: BUDESONIDE\FORMOTEROL FUMARATE DIHYDRATE
  4. PREDNISONE [Suspect]
     Active Substance: PREDNISONE
  5. DORZOLAMIDE [Suspect]
     Active Substance: DORZOLAMIDE
  6. TYLENOL [Concomitant]
     Active Substance: ACETAMINOPHEN

REACTIONS (7)
  - Headache [None]
  - Swelling [None]
  - Nonspecific reaction [None]
  - Pain in extremity [None]
  - Arthralgia [None]
  - Tooth disorder [None]
  - Abdominal pain upper [None]
